FAERS Safety Report 5306172-9 (Version None)
Quarter: 2007Q2

REPORT INFORMATION
  Report Type: 
  Country: None (occurrence: None)
  Receive Date: 20070416
  Receipt Date: 20070402
  Transmission Date: 20071010
  Serious: Yes (Other)
  Sender: FDA-Public Use
  Company Number: 2007RR-06665

PATIENT
  Age: 12 Year
  Sex: Female

DRUGS (3)
  1. CIPROFLOXACIN [Suspect]
     Dosage: 500 MG, BID, INTRAVENOUS
     Route: 042
  2. METHOTREXATE [Suspect]
     Dosage: 12 G/M^2
  3. LEUCOVORIN CALCIUM [Concomitant]

REACTIONS (4)
  - DISEASE PROGRESSION [None]
  - DRUG INTERACTION [None]
  - RENAL FAILURE [None]
  - SKIN TOXICITY [None]
